FAERS Safety Report 19497280 (Version 1)
Quarter: 2021Q3

REPORT INFORMATION
  Report Type: Spontaneous
  Country: US (occurrence: US)
  Receive Date: 20210706
  Receipt Date: 20210706
  Transmission Date: 20211014
  Serious: No
  Sender: FDA-Public Use
  Company Number: US-009507513-2107USA000484

PATIENT
  Sex: Male

DRUGS (2)
  1. SEGLUROMET [Suspect]
     Active Substance: ERTUGLIFLOZIN PIDOLATE\METFORMIN HYDROCHLORIDE
     Dosage: 1 PILL (7.5/1000 MG), TWICE PER DAY
  2. SEGLUROMET [Suspect]
     Active Substance: ERTUGLIFLOZIN PIDOLATE\METFORMIN HYDROCHLORIDE
     Dosage: 1 PILL (7.5/1000) MG ONCE DAILY

REACTIONS (3)
  - Intentional product misuse [Unknown]
  - No adverse event [Unknown]
  - Product dose omission issue [Unknown]
